FAERS Safety Report 18051421 (Version 1)
Quarter: 2020Q3

REPORT INFORMATION
  Report Type: Spontaneous
  Country: US (occurrence: US)
  Receive Date: 20200721
  Receipt Date: 20200721
  Transmission Date: 20201103
  Serious: No
  Sender: FDA-Public Use
  Company Number: US-ROCHE-2591304

PATIENT
  Sex: Male
  Weight: 92.3 kg

DRUGS (1)
  1. TNKASE [Suspect]
     Active Substance: TENECTEPLASE
     Indication: ACUTE MYOCARDIAL INFARCTION
     Dosage: NO
     Route: 042
     Dates: start: 20200424

REACTIONS (2)
  - Product administration error [Unknown]
  - No adverse event [Unknown]
